FAERS Safety Report 7293890-9 (Version None)
Quarter: 2011Q1

REPORT INFORMATION
  Report Type: 
  Country: None (occurrence: None)
  Receive Date: 20110215
  Receipt Date: 20110209
  Transmission Date: 20110831
  Serious: Yes (Other)
  Sender: FDA-Public Use
  Company Number: BR-PFIZER INC-2011012632

PATIENT
  Age: 73 Year
  Sex: Female
  Weight: 47 kg

DRUGS (2)
  1. LIPITOR [Suspect]
     Dosage: 10 MG, 1X/DAY
     Route: 048
     Dates: start: 20071001, end: 20101001
  2. PURAN T4 [Suspect]
     Indication: THYROID DISORDER
     Dosage: UNK
     Route: 048

REACTIONS (2)
  - GASTRITIS [None]
  - GASTRIC POLYPS [None]
